FAERS Safety Report 8181410-6 (Version None)
Quarter: 2012Q1

REPORT INFORMATION
  Report Type: 
  Country: None (occurrence: None)
  Receive Date: 20120302
  Receipt Date: 20120222
  Transmission Date: 20120608
  Serious: Yes (Life-Threatening, Hospitalization)
  Sender: FDA-Public Use
  Company Number: DE-JNJFOC-20120210656

PATIENT
  Sex: Male
  Weight: 90 kg

DRUGS (3)
  1. RAMIPRIL [Concomitant]
     Route: 065
  2. STELARA [Suspect]
     Indication: PRODUCT USED FOR UNKNOWN INDICATION
     Route: 058
     Dates: start: 20110407, end: 20111202
  3. ISONIAZID [Concomitant]
     Route: 065
     Dates: start: 20110101

REACTIONS (1)
  - MYOCARDIAL INFARCTION [None]
